FAERS Safety Report 20808436 (Version 2)
Quarter: 2022Q2

REPORT INFORMATION
  Report Type: Spontaneous
  Country: SA (occurrence: SA)
  Receive Date: 20220510
  Receipt Date: 20220527
  Transmission Date: 20220721
  Serious: Yes (Other)
  Sender: FDA-Public Use
  Company Number: SA-MACLEODS PHARMACEUTICALS US LTD-MAC2022035483

PATIENT

DRUGS (1)
  1. CELECOXIB [Suspect]
     Active Substance: CELECOXIB
     Indication: Sacroiliitis
     Dosage: 200 MILLIGRAM, QD (STARTED IN APR 2019) TABLET
     Route: 065

REACTIONS (2)
  - Blindness unilateral [Recovered/Resolved]
  - Vision blurred [Recovered/Resolved]

NARRATIVE: CASE EVENT DATE: 20190101
